FAERS Safety Report 23047015 (Version 1)
Quarter: 2023Q4

REPORT INFORMATION
  Report Type: Spontaneous
  Country: NL (occurrence: NL)
  Receive Date: 20231009
  Receipt Date: 20231009
  Transmission Date: 20240109
  Serious: Yes (Hospitalization, Other)
  Sender: FDA-Public Use
  Company Number: NL-JAZZ PHARMACEUTICALS-2023-NL-020589

PATIENT

DRUGS (2)
  1. CANNABIDIOL [Suspect]
     Active Substance: CANNABIDIOL
     Indication: Product used for unknown indication
     Dosage: 200 MG/DAY IN OVER 100KG
  2. CANNABIDIOL [Suspect]
     Active Substance: CANNABIDIOL
     Dosage: 700 MG/DAY

REACTIONS (3)
  - Pneumonia [Unknown]
  - Hypothermia [Unknown]
  - Somnolence [Unknown]
